FAERS Safety Report 10921354 (Version 1)
Quarter: 2015Q1

REPORT INFORMATION
  Report Type: Spontaneous
  Country: US (occurrence: None)
  Receive Date: 20150312
  Receipt Date: 20150312
  Transmission Date: 20150721
  Serious: Yes (Death, Other)
  Sender: FDA-Public Use
  Company Number: FK201501143

PATIENT
  Age: 25 Year
  Sex: Female

DRUGS (3)
  1. DORIPENEM [Suspect]
     Active Substance: DORIPENEM
     Indication: PRODUCT USED FOR UNKNOWN INDICATION
  2. COLISTIMETHATE [Suspect]
     Active Substance: COLISTIMETHATE SODIUM
     Indication: BACTERAEMIA
  3. TIGECYCLINE [Concomitant]
     Active Substance: TIGECYCLINE

REACTIONS (3)
  - Haemodialysis [None]
  - Infective aneurysm [None]
  - Renal failure [None]
